FAERS Safety Report 8300636-1 (Version None)
Quarter: 2012Q2

REPORT INFORMATION
  Report Type: 
  Country: None (occurrence: None)
  Receive Date: 20120420
  Receipt Date: 20120413
  Transmission Date: 20120825
  Serious: Yes (Other)
  Sender: FDA-Public Use
  Company Number: PHHY2011BR102034

PATIENT
  Sex: Female

DRUGS (1)
  1. DIOVAN [Suspect]
     Dosage: 80 MG

REACTIONS (5)
  - CHEST DISCOMFORT [None]
  - DEPRESSION [None]
  - NERVOUSNESS [None]
  - HEADACHE [None]
  - HYPERTENSION [None]
